FAERS Safety Report 18149845 (Version 2)
Quarter: 2024Q3

REPORT INFORMATION
  Report Type: Report from Study
  Country: US (occurrence: US)
  Receive Date: 20200814
  Receipt Date: 20240805
  Transmission Date: 20241016
  Serious: No
  Sender: RANBAXY
  Company Number: US-SUN PHARMACEUTICAL INDUSTRIES LTD-2020R1-245396

PATIENT
  Age: 95 Year
  Sex: Female

DRUGS (1)
  1. SONIDEGIB [Suspect]
     Active Substance: SONIDEGIB
     Indication: Product used for unknown indication
     Route: 065

REACTIONS (3)
  - Wound [Unknown]
  - Product dose omission issue [Unknown]
  - Alopecia [Unknown]

NARRATIVE: CASE EVENT DATE: 20200417
